FAERS Safety Report 13472295 (Version 1)
Quarter: 2017Q2

REPORT INFORMATION
  Report Type: Spontaneous
  Country: CN (occurrence: CN)
  Receive Date: 20170424
  Receipt Date: 20170424
  Transmission Date: 20170830
  Serious: Yes (Other)
  Sender: FDA-Public Use
  Company Number: CN-MYLANLABS-2017M1024519

PATIENT

DRUGS (2)
  1. CARBOPLATIN. [Suspect]
     Active Substance: CARBOPLATIN
     Indication: OVARIAN CANCER
     Dosage: 0.4G
     Route: 065
     Dates: start: 20150828
  2. INVESTIGATIONAL ANTINEOPLASTIC DRUGS [Suspect]
     Active Substance: INVESTIGATIONAL PRODUCT
     Indication: OVARIAN CANCER
     Dosage: AFTER MEALS
     Route: 065
     Dates: start: 20150912

REACTIONS (10)
  - Palmar-plantar erythrodysaesthesia syndrome [Recovered/Resolved]
  - Bone marrow failure [Unknown]
  - Decreased appetite [Recovered/Resolved]
  - Hypertension [Recovered/Resolved]
  - Gastric ulcer [Recovered/Resolved]
  - Vomiting [Recovered/Resolved]
  - Diarrhoea [Recovered/Resolved]
  - Nausea [Recovered/Resolved]
  - Mouth ulceration [Recovered/Resolved]
  - Oropharyngeal pain [Recovered/Resolved]

NARRATIVE: CASE EVENT DATE: 20150922
